FAERS Safety Report 20727185 (Version 3)
Quarter: 2022Q3

REPORT INFORMATION
  Report Type: Report from Study
  Country: FR (occurrence: FR)
  Receive Date: 20220419
  Receipt Date: 20220706
  Transmission Date: 20221027
  Serious: Yes (Hospitalization)
  Sender: FDA-Public Use
  Company Number: FR-CELGENE-FRA-20220200623

PATIENT
  Age: 57 Year
  Sex: Female
  Weight: 97 kg

DRUGS (4)
  1. LENALIDOMIDE [Suspect]
     Active Substance: LENALIDOMIDE
     Indication: Follicular lymphoma
     Dosage: 20 MILLIGRAM
     Route: 048
     Dates: start: 20211217, end: 20220106
  2. MOSUNETUZUMAB [Suspect]
     Active Substance: MOSUNETUZUMAB
     Indication: Follicular lymphoma
     Dosage: 5 MILLIGRAM
     Route: 042
     Dates: start: 20211102
  3. RETINOL [Concomitant]
     Active Substance: RETINOL
     Indication: Keratitis
     Dosage: 1 IN 1 D
     Route: 047
     Dates: start: 20211118, end: 20211217
  4. RETINOL [Concomitant]
     Active Substance: RETINOL

REACTIONS (1)
  - Dermatitis psoriasiform [Not Recovered/Not Resolved]

NARRATIVE: CASE EVENT DATE: 20211114
